FAERS Safety Report 13448247 (Version 2)
Quarter: 2017Q2

REPORT INFORMATION
  Report Type: Spontaneous
  Country: US (occurrence: US)
  Receive Date: 20170417
  Receipt Date: 20170428
  Transmission Date: 20170830
  Serious: Yes (Death, Life-Threatening, Hospitalization, Other)
  Sender: FDA-Public Use
  Company Number: US-VALIDUS PHARMACEUTICALS LLC-US-2017VAL000590

PATIENT
  Age: 74 Year
  Sex: Female

DRUGS (10)
  1. RIFAXIMIN [Suspect]
     Active Substance: RIFAXIMIN
     Indication: ACUTE HEPATIC FAILURE
     Dosage: 550 MG, BID
     Route: 065
  2. SYNTHROID [Concomitant]
     Active Substance: LEVOTHYROXINE SODIUM
     Indication: PRODUCT USED FOR UNKNOWN INDICATION
  3. PROTONIX [Concomitant]
     Active Substance: PANTOPRAZOLE SODIUM
     Indication: PRODUCT USED FOR UNKNOWN INDICATION
  4. ZOCOR [Concomitant]
     Active Substance: SIMVASTATIN
     Indication: PRODUCT USED FOR UNKNOWN INDICATION
  5. LASIX [Suspect]
     Active Substance: FUROSEMIDE
     Indication: ACUTE HEPATIC FAILURE
     Dosage: 40 MG, QD
     Route: 065
  6. LACTULOSE. [Suspect]
     Active Substance: LACTULOSE
     Indication: ACUTE HEPATIC FAILURE
     Dosage: 20 G, QD
     Route: 065
  7. SPIRONOLACTONE. [Suspect]
     Active Substance: SPIRONOLACTONE
     Indication: ACUTE HEPATIC FAILURE
     Dosage: 100 MG, QD
     Route: 065
  8. CIPROFLOXACIN. [Suspect]
     Active Substance: CIPROFLOXACIN
     Indication: URINARY TRACT INFECTION
     Dosage: 500 MG, BID
     Route: 048
  9. CIPROFLOXACIN. [Suspect]
     Active Substance: CIPROFLOXACIN
     Dosage: UNK
     Route: 065
  10. PREDNISONE. [Suspect]
     Active Substance: PREDNISONE
     Indication: ACUTE HEPATIC FAILURE
     Dosage: 20 MG, QD
     Route: 065

REACTIONS (28)
  - Alanine aminotransferase increased [Fatal]
  - Fatigue [Fatal]
  - Hepatitis cholestatic [Fatal]
  - Blood alkaline phosphatase increased [Fatal]
  - Cholestasis [Fatal]
  - Jaundice [Fatal]
  - Hepatic encephalopathy [Fatal]
  - Blood bilirubin increased [Fatal]
  - Fluid intake reduced [Fatal]
  - Disorientation [Fatal]
  - International normalised ratio increased [Unknown]
  - Acute hepatic failure [Fatal]
  - Portal fibrosis [Fatal]
  - Dyspnoea [Fatal]
  - Coagulopathy [Unknown]
  - Presyncope [Fatal]
  - Hepatic fibrosis [Fatal]
  - Vomiting [Fatal]
  - Ascites [Fatal]
  - Oedema [Fatal]
  - Blood albumin decreased [Fatal]
  - Hypoperfusion [Unknown]
  - Asthenia [Fatal]
  - Oedema peripheral [Fatal]
  - Aspartate aminotransferase increased [Fatal]
  - Biopsy liver abnormal [Fatal]
  - Nausea [Fatal]
  - Dehydration [Unknown]
